FAERS Safety Report 5565918-5 (Version None)
Quarter: 2007Q4

REPORT INFORMATION
  Report Type: 
  Country: None (occurrence: None)
  Receive Date: 20071213
  Receipt Date: 20071129
  Transmission Date: 20080405
  Serious: Yes (Hospitalization)
  Sender: FDA-Public Use
  Company Number: JP-1164673

PATIENT
  Age: 63 Year
  Sex: Female

DRUGS (3)
  1. PATANOL [Suspect]
     Indication: CONJUNCTIVITIS ALLERGIC
     Dosage: OPHTHALMIC
     Route: 047
     Dates: start: 20071029
  2. TEARBALANCE             (HYALURONATE SODIUM) [Concomitant]
  3. SOFT SANTEAR                (POTASSIUM CHLORIDE) [Concomitant]

REACTIONS (6)
  - ANXIETY [None]
  - CONVULSION [None]
  - DYSARTHRIA [None]
  - EYE PAIN [None]
  - SHOCK [None]
  - SWELLING FACE [None]
